FAERS Safety Report 12072273 (Version 1)
Quarter: 2016Q1

REPORT INFORMATION
  Report Type: Spontaneous
  Country: US (occurrence: US)
  Receive Date: 20160212
  Receipt Date: 20160212
  Transmission Date: 20160526
  Serious: Yes (Death, Other)
  Sender: FDA-Public Use
  Company Number: US-AMGEN-USASP2016015638

PATIENT
  Age: 71 Year
  Sex: Female

DRUGS (9)
  1. DAYPRO [Concomitant]
     Active Substance: OXAPROZIN
  2. DEXILANT [Concomitant]
     Active Substance: DEXLANSOPRAZOLE
  3. ENBREL [Suspect]
     Active Substance: ETANERCEPT
     Indication: RHEUMATOID ARTHRITIS
     Dosage: 25 MG, 2 TIMES/WK
     Route: 058
  4. RHEUMATREX [Concomitant]
     Active Substance: METHOTREXATE SODIUM
  5. MONTELUKAST [Concomitant]
     Active Substance: MONTELUKAST SODIUM
  6. CLOPIDOGREL [Concomitant]
     Active Substance: CLOPIDOGREL BISULFATE
  7. FOLIC ACID. [Concomitant]
     Active Substance: FOLIC ACID
  8. HYDROCODONE [Concomitant]
     Active Substance: HYDROCODONE
  9. CHERATUSSIN AC [Concomitant]
     Active Substance: CODEINE PHOSPHATE\GUAIFENESIN

REACTIONS (1)
  - Death [Fatal]
